FAERS Safety Report 9961123 (Version 1)
Quarter: 2014Q1

REPORT INFORMATION
  Report Type: Spontaneous
  Country: US (occurrence: None)
  Receive Date: 20140127
  Receipt Date: 20140127
  Transmission Date: 20141002
  Serious: Yes (Other)
  Sender: FDA-Public Use
  Company Number: 1209399

PATIENT
  Age: 19 Year
  Sex: Male

DRUGS (7)
  1. ACTILYSE [Suspect]
     Indication: ISCHAEMIC STROKE
     Dosage: 9 MG, INTRAVENOUS (NOT OTHERWISE SPECIFIED)
     Route: 042
  2. RETEPLASE [Suspect]
     Indication: ISCHAEMIC STROKE
     Route: 013
  3. ARGATROBAN [Suspect]
     Indication: ISCHAEMIC STROKE
     Dosage: DOSE: 2 MCG/KG/MIN, INTRAVENOUS (NOT OTHERWISE SPECIFIED)
     Route: 042
  4. WARFARIN (WARFARIN SODIUM) [Concomitant]
  5. ENOXAPARIN (ENOXAPARIN SODIUM) [Concomitant]
  6. HEPARIN (HEPARIN SODIUM) [Concomitant]
  7. ASPIRIN (ASPIRIN) [Concomitant]

REACTIONS (2)
  - Cerebral infarction [None]
  - Drug ineffective [None]
